FAERS Safety Report 21416007 (Version 1)
Quarter: 2022Q4

REPORT INFORMATION
  Report Type: Spontaneous
  Country: GB (occurrence: GB)
  Receive Date: 20221006
  Receipt Date: 20221006
  Transmission Date: 20230113
  Serious: Yes (Hospitalization)
  Sender: FDA-Public Use
  Company Number: None

PATIENT
  Age: 83 Year
  Sex: Female

DRUGS (6)
  1. PREGABALIN [Suspect]
     Active Substance: PREGABALIN
     Indication: Neuralgia
     Dosage: 200 MILLIGRAM, QD (200MG OD) (ONE IN MORNING AND THREE AT NIGHT)
     Route: 065
  2. QUININE SULFATE [Concomitant]
     Active Substance: QUININE SULFATE
     Indication: Muscle spasms
     Dosage: 1 AT NIGHT FOR LEG CRAMPS IF NEEDED -TRY AND REDUCE OR HAVE A BREAK FROM THIS MEDICATION
     Route: 065
  3. LORATADINE [Concomitant]
     Active Substance: LORATADINE
     Dosage: 10 MILLIGRAM (1OM)
     Route: 065
  4. SERETIDE [Concomitant]
     Active Substance: FLUTICASONE PROPIONATE\SALMETEROL XINAFOATE
     Dosage: 2 DOSAGE FORM, BID (SERETIDE 125 EVOHALER TWO PUFFS TWICE A DAY)
     Route: 065
  5. SYSTANE (HYPROMELLOSE 2910 (4000 MPA.S)) [Concomitant]
     Active Substance: HYPROMELLOSE 2910 (4000 MPA.S)
     Dosage: SYSTANE EYE DROPS ASD BY OPTHALMOLOGY 10 ML
     Route: 065
  6. ALBUTEROL SULFATE [Concomitant]
     Active Substance: ALBUTEROL SULFATE
     Dosage: 2 DOSAGE FORM, PRN (100MICROGRAMS/DOSE AUTOHALER TWO PUFFS AS REQUIRED)
     Route: 065

REACTIONS (1)
  - Fall [Recovered/Resolved with Sequelae]
